FAERS Safety Report 5238429-4 (Version None)
Quarter: 2007Q1

REPORT INFORMATION
  Report Type: 
  Country: None (occurrence: None)
  Receive Date: 20070215
  Receipt Date: 20070205
  Transmission Date: 20070707
  Serious: Yes (Hospitalization)
  Sender: FDA-Public Use
  Company Number: US-BAXTER-2007BH001729

PATIENT
  Age: 44 Year
  Sex: Female

DRUGS (4)
  1. IMMUNE GLOBULIN INTRAVENOUS (HUMAN) [Suspect]
     Indication: HYPOGAMMAGLOBULINAEMIA
     Route: 042
     Dates: end: 20061221
  2. IMMUNE GLOBULIN INTRAVENOUS (HUMAN) [Suspect]
     Route: 042
     Dates: end: 20061221
  3. PHENERGAN [Concomitant]
     Indication: PREMEDICATION
     Dates: start: 20061221, end: 20061221
  4. TYLENOL (CAPLET) [Concomitant]
     Indication: PREMEDICATION
     Dates: start: 20061221, end: 20061221

REACTIONS (2)
  - BACK PAIN [None]
  - CHEST PAIN [None]
